FAERS Safety Report 10037118 (Version 1)
Quarter: 2014Q1

REPORT INFORMATION
  Report Type: Spontaneous
  Country: US (occurrence: None)
  Receive Date: 20140324
  Receipt Date: 20140324
  Transmission Date: 20141002
  Serious: Yes (Hospitalization)
  Sender: FDA-Public Use
  Company Number: 1713747-2014-99926

PATIENT
  Age: 60 Year
  Sex: Male
  Weight: 82 kg

DRUGS (13)
  1. DELFLEX [Suspect]
  2. METOPROLOL [Concomitant]
  3. SODIUM BICARBONATE [Concomitant]
  4. LANTUS [Concomitant]
  5. NOVOLOG [Concomitant]
  6. ZETIA [Concomitant]
  7. COLACE [Concomitant]
  8. CALCIUM ACETATE [Concomitant]
  9. CALCITRIOL [Concomitant]
  10. RENAL CAPSULE [Concomitant]
  11. ASPIRIN [Concomitant]
  12. ANTIBIOTICS [Concomitant]
  13. LIBERTY CYCLER CASSETTE [Suspect]

REACTIONS (2)
  - Peritonitis [None]
  - Peritoneal cloudy effluent [None]
